FAERS Safety Report 25855432 (Version 1)
Quarter: 2025Q3

REPORT INFORMATION
  Report Type: Spontaneous
  Country: US (occurrence: US)
  Receive Date: 20250927
  Receipt Date: 20250927
  Transmission Date: 20251020
  Serious: No
  Sender: RANBAXY
  Company Number: US-MIMS-SUN-2025-USA-55261

PATIENT
  Sex: Female

DRUGS (1)
  1. ALBUTEROL\IPRATROPIUM BROMIDE [Suspect]
     Active Substance: ALBUTEROL\IPRATROPIUM BROMIDE
     Indication: Product used for unknown indication
     Route: 065

REACTIONS (2)
  - Liquid product physical issue [Unknown]
  - Poor quality product administered [Unknown]
